FAERS Safety Report 9278688 (Version 1)
Quarter: 2013Q2

REPORT INFORMATION
  Report Type: Spontaneous
  Country: US (occurrence: US)
  Receive Date: 20130508
  Receipt Date: 20130508
  Transmission Date: 20140414
  Serious: Yes (Hospitalization)
  Sender: FDA-Public Use
  Company Number: US-PFIZER INC-2013138875

PATIENT
  Age: 63 Year
  Sex: Male
  Weight: 99.8 kg

DRUGS (2)
  1. LEVOXYL [Suspect]
     Indication: HYPOTHYROIDISM
     Dosage: 100 UG, 1X/DAY
     Route: 048
  2. LEVOXYL [Suspect]
     Dosage: 125 UG, 1X/DAY
     Route: 048

REACTIONS (1)
  - Arrhythmia [Unknown]
